FAERS Safety Report 24875458 (Version 1)
Quarter: 2025Q1

REPORT INFORMATION
  Report Type: Spontaneous
  Country: US (occurrence: US)
  Receive Date: 20250122
  Receipt Date: 20250122
  Transmission Date: 20250409
  Serious: No
  Sender: JOHNSON AND JOHNSON
  Company Number: US-JNJFOC-20241282803

PATIENT
  Sex: Female

DRUGS (3)
  1. INVEGA SUSTENNA [Suspect]
     Active Substance: PALIPERIDONE PALMITATE
     Indication: Product used for unknown indication
     Route: 030
     Dates: start: 20170526
  2. INVEGA SUSTENNA [Suspect]
     Active Substance: PALIPERIDONE PALMITATE
  3. INVEGA SUSTENNA [Suspect]
     Active Substance: PALIPERIDONE PALMITATE

REACTIONS (7)
  - Blood glucose increased [Unknown]
  - Fatigue [Unknown]
  - Dizziness [Unknown]
  - Gait inability [Unknown]
  - Fear of falling [Unknown]
  - Gastrointestinal disorder [Unknown]
  - Pressure of speech [Unknown]

NARRATIVE: CASE EVENT DATE: 20190101
